FAERS Safety Report 24818623 (Version 1)
Quarter: 2025Q1

REPORT INFORMATION
  Report Type: Report from Study
  Country: US (occurrence: US)
  Receive Date: 20250108
  Receipt Date: 20250108
  Transmission Date: 20250408
  Serious: Yes (Hospitalization)
  Sender: ROCHE
  Company Number: US-ROCHE-10000147806

PATIENT
  Age: 51 Day
  Sex: Male
  Weight: 3.17 kg

DRUGS (2)
  1. EVRYSDI [Suspect]
     Active Substance: RISDIPLAM
     Indication: Spinal muscular atrophy
     Dosage: 100 ML BOTTLE
     Route: 048
     Dates: start: 20241107
  2. ACRIVASTINE [Suspect]
     Active Substance: ACRIVASTINE
     Indication: Product used for unknown indication
     Route: 065

REACTIONS (6)
  - Dyspnoea [Recovering/Resolving]
  - Anger [Unknown]
  - Weight decreased [Unknown]
  - Crying [Unknown]
  - Ill-defined disorder [Unknown]
  - Dysphagia [Unknown]

NARRATIVE: CASE EVENT DATE: 20241127
